FAERS Safety Report 19805324 (Version 1)
Quarter: 2021Q3

REPORT INFORMATION
  Report Type: Spontaneous
  Country: FR (occurrence: FR)
  Receive Date: 20210908
  Receipt Date: 20210908
  Transmission Date: 20211014
  Serious: Yes (Hospitalization)
  Sender: FDA-Public Use
  Company Number: FR-MYLANLABS-2021M1059421

PATIENT
  Age: 35 Year
  Sex: Female
  Weight: 46 kg

DRUGS (15)
  1. PIPERACILLINE                      /00502401/ [Suspect]
     Active Substance: PIPERACILLIN
     Indication: PROPHYLAXIS
     Dosage: VOIR COMMENTAIRE
     Route: 042
     Dates: start: 20191113, end: 20191204
  2. PREGABALINE [Concomitant]
     Active Substance: PREGABALIN
     Dosage: 225 MILLIGRAM, QD
     Route: 048
     Dates: start: 20191128, end: 20191212
  3. MEROPENEM. [Suspect]
     Active Substance: MEROPENEM
     Indication: PROPHYLAXIS
     Dosage: 3 GRAM, QD
     Route: 042
     Dates: start: 20191204, end: 20191207
  4. DAPTOMYCINE [Concomitant]
     Active Substance: DAPTOMYCIN
     Dosage: 350 MILLIGRAM, QD
     Route: 042
     Dates: start: 20191212, end: 20191216
  5. LAROXYL [Concomitant]
     Active Substance: AMITRIPTYLINE HYDROCHLORIDE
     Dosage: VOIR COMMENTAIRE
     Route: 048
     Dates: start: 20191128, end: 20191214
  6. HYDROXYZINE HYDROCHLORIDE. [Concomitant]
     Active Substance: HYDROXYZINE HYDROCHLORIDE
     Dosage: 50 MILLIGRAM, QD
     Route: 048
     Dates: start: 20191118, end: 20191216
  7. LOVENOX [Concomitant]
     Active Substance: ENOXAPARIN SODIUM
     Dosage: 1 DOSAGE FORM, QD
     Route: 058
     Dates: start: 20191129, end: 20191216
  8. KETOPROFENE                        /00321701/ [Concomitant]
     Active Substance: KETOPROFEN
     Dosage: 2 AMPOULES PAR JOUR (INTRA CORPUS)
     Dates: start: 20191129, end: 20191202
  9. PARACETAMOL [Concomitant]
     Active Substance: ACETAMINOPHEN
     Dosage: 3 GRAM, QD
     Route: 048
     Dates: start: 201911, end: 20191216
  10. CIPROFLOXACINE                     /00697201/ [Concomitant]
     Active Substance: CIPROFLOXACIN
     Dosage: 1000 MILLIGRAM, QD
     Route: 048
     Dates: start: 20191118, end: 20191204
  11. CETIRIZINE                         /00884302/ [Concomitant]
     Active Substance: CETIRIZINE HYDROCHLORIDE
     Dosage: 10 MILLIGRAM, QD
     Route: 048
     Dates: start: 201911, end: 20191216
  12. ACIDE FOLIQUE [Concomitant]
     Active Substance: FOLIC ACID
     Dosage: 5 MILLIGRAM, QD
     Route: 048
     Dates: start: 201911, end: 20191216
  13. SKENAN [Concomitant]
     Active Substance: MORPHINE SULFATE
     Dosage: 80 MILLIGRAM, QD
     Route: 048
     Dates: start: 20191203, end: 20191216
  14. TAZOBACTAM [Suspect]
     Active Substance: TAZOBACTAM
     Indication: PROPHYLAXIS
     Dosage: VOIR COMMENTAIRE
     Route: 042
     Dates: start: 20191113, end: 20191204
  15. VANCOMYCIN [Suspect]
     Active Substance: VANCOMYCIN
     Indication: PROPHYLAXIS
     Dosage: VOIR COMMENTAIRE
     Route: 042
     Dates: start: 20191204, end: 20191207

REACTIONS (4)
  - Dermatitis exfoliative generalised [Recovered/Resolved]
  - Thrombocytopenia [Recovered/Resolved]
  - Pyrexia [Recovered/Resolved]
  - Leukopenia [Recovered/Resolved]

NARRATIVE: CASE EVENT DATE: 20191204
